FAERS Safety Report 16642040 (Version 1)
Quarter: 2019Q3

REPORT INFORMATION
  Report Type: Spontaneous
  Country: US (occurrence: US)
  Receive Date: 20190729
  Receipt Date: 20190729
  Transmission Date: 20191004
  Serious: Yes (Hospitalization, Other)
  Sender: FDA-Public Use
  Company Number: US-PFIZER INC-2019318557

PATIENT
  Age: 24 Year
  Sex: Male

DRUGS (6)
  1. COKE (COCAINE) [Suspect]
     Active Substance: COCAINE
  2. GABAPENTIN. [Suspect]
     Active Substance: GABAPENTIN
     Dosage: UNK
  3. WEED [Suspect]
     Active Substance: CANNABIS SATIVA SUBSP. INDICA TOP
  4. SUBOXONE [Suspect]
     Active Substance: BUPRENORPHINE HYDROCHLORIDE\NALOXONE HYDROCHLORIDE
  5. SUBOXONE [Suspect]
     Active Substance: BUPRENORPHINE HYDROCHLORIDE\NALOXONE HYDROCHLORIDE
     Dosage: UNK
     Route: 060
  6. HEROIN [Suspect]
     Active Substance: DIAMORPHINE
     Dosage: UNK

REACTIONS (5)
  - Drug dependence [Not Recovered/Not Resolved]
  - Substance abuse [Unknown]
  - Drug detoxification [Not Recovered/Not Resolved]
  - Asthenia [Unknown]
  - Therapeutic product effect incomplete [Recovered/Resolved]

NARRATIVE: CASE EVENT DATE: 2018
